FAERS Safety Report 4288737-9 (Version None)
Quarter: 2004Q1

REPORT INFORMATION
  Report Type: 
  Country: None (occurrence: None)
  Receive Date: 20040205
  Receipt Date: 20040127
  Transmission Date: 20041129
  Serious: Yes (Hospitalization)
  Sender: FDA-Public Use
  Company Number: FR-JNJFOC-20031102703

PATIENT
  Age: 41 Year
  Sex: Male
  Weight: 84 kg

DRUGS (8)
  1. REMICADE [Suspect]
     Indication: RHEUMATOID ARTHRITIS
     Dosage: 5 MG/KG, INTRAVENOUS
     Route: 042
     Dates: start: 20010611, end: 20031104
  2. FLURBIPROFEN [Suspect]
     Dosage: 300 MG, 1 IN 1 DAY, ORAL
     Route: 048
     Dates: end: 20031104
  3. PREDNISONE [Suspect]
     Indication: RHEUMATOID ARTHRITIS
     Dosage: 16 MG, 1 IN 1 DAY, ORAL
     Route: 048
  4. METHOTREXATE [Suspect]
     Indication: RHEUMATOID ARTHRITIS
     Dosage: 12.5 MG, 1 IN 1 WEEK, ORAL
     Route: 048
  5. FOLIC ACID [Concomitant]
  6. SUCRALFATE [Concomitant]
  7. DIFF-K (POTASSIUM CHLORIDE) [Concomitant]
  8. OSSOPAN (DURAPATINE) [Concomitant]

REACTIONS (6)
  - CYANOSIS [None]
  - HYPERSENSITIVITY [None]
  - NECROSIS [None]
  - PERIPHERAL ISCHAEMIA [None]
  - URTICARIA [None]
  - VASCULITIS [None]
